FAERS Safety Report 6962017-2 (Version None)
Quarter: 2010Q3

REPORT INFORMATION
  Report Type: 
  Country: None (occurrence: None)
  Receive Date: 20100902
  Receipt Date: 20100827
  Transmission Date: 20110219
  Serious: Yes (Other)
  Sender: FDA-Public Use
  Company Number: US-ASTRAZENECA-2007UW14033

PATIENT
  Age: 15853 Day
  Sex: Female
  Weight: 58.1 kg

DRUGS (5)
  1. SEROQUEL [Suspect]
     Indication: DEPRESSION
     Dosage: 25 MG TO 200 MG
     Route: 048
     Dates: start: 20000123, end: 20060801
  2. ZYPREXA [Concomitant]
     Indication: DEPRESSION
     Dates: start: 20080101
  3. ABILIFY [Concomitant]
  4. HALDOL [Concomitant]
  5. CELEXA [Concomitant]
     Dates: start: 20080101

REACTIONS (3)
  - DIABETIC COMPLICATION [None]
  - INJURY [None]
  - TYPE 2 DIABETES MELLITUS [None]
